FAERS Safety Report 6214604-7 (Version None)
Quarter: 2009Q2

REPORT INFORMATION
  Report Type: 
  Country: None (occurrence: None)
  Receive Date: 20090604
  Receipt Date: 20090525
  Transmission Date: 20091009
  Serious: Yes (Life-Threatening)
  Sender: FDA-Public Use
  Company Number: DE-PFIZER INC-2008152907

PATIENT
  Age: 60 Year

DRUGS (2)
  1. SUTENT [Suspect]
     Indication: RENAL CELL CARCINOMA
     Dosage: 50 MG, 1X/DAY
     Route: 048
     Dates: start: 20070901, end: 20080101
  2. DICLOFENAC SODIUM [Suspect]
     Dosage: 100 UNK, 1X/DAY
     Route: 048

REACTIONS (1)
  - ACUTE MYOCARDIAL INFARCTION [None]
